FAERS Safety Report 10831999 (Version 3)
Quarter: 2015Q2

REPORT INFORMATION
  Report Type: Spontaneous
  Country: US (occurrence: US)
  Receive Date: 20150219
  Receipt Date: 20150529
  Transmission Date: 20150821
  Serious: No
  Sender: FDA-Public Use
  Company Number: US-009507513-1502USA008516

PATIENT
  Age: 28 Year
  Sex: Female
  Weight: 125.17 kg

DRUGS (2)
  1. PRISTIQ EXTENDED RELEASE [Concomitant]
     Active Substance: DESVENLAFAXINE SUCCINATE
  2. NEXPLANON [Suspect]
     Active Substance: ETONOGESTREL
     Indication: CONTRACEPTION
     Dosage: SINGLE (68 MG) ROD, 1 ROD /3 YEARS
     Route: 059
     Dates: start: 20150212

REACTIONS (3)
  - Pain in extremity [Recovered/Resolved]
  - Implant site pain [Recovered/Resolved]
  - Burning sensation [Recovered/Resolved]

NARRATIVE: CASE EVENT DATE: 201502
